FAERS Safety Report 24945924 (Version 3)
Quarter: 2025Q1

REPORT INFORMATION
  Report Type: Report from Study
  Country: US (occurrence: US)
  Receive Date: 20250209
  Receipt Date: 20250220
  Transmission Date: 20250409
  Serious: Yes (Other)
  Sender: JOHNSON AND JOHNSON
  Company Number: US-JNJFOC-20250190125

PATIENT
  Age: 65 Year
  Sex: Male

DRUGS (2)
  1. SPRAVATO [Suspect]
     Active Substance: ESKETAMINE
     Indication: Depression
     Route: 045
     Dates: start: 20241119, end: 20241219
  2. SPRAVATO [Suspect]
     Active Substance: ESKETAMINE
     Route: 045
     Dates: start: 20241223, end: 20250114

REACTIONS (5)
  - Knee arthroplasty [Unknown]
  - Pollakiuria [Unknown]
  - Depression [Unknown]
  - Product dose omission issue [Unknown]
  - Drug ineffective [Unknown]
